FAERS Safety Report 20662589 (Version 5)
Quarter: 2022Q2

REPORT INFORMATION
  Report Type: Spontaneous
  Country: CN (occurrence: CN)
  Receive Date: 20220401
  Receipt Date: 20220519
  Transmission Date: 20220721
  Serious: Yes (Hospitalization)
  Sender: FDA-Public Use
  Company Number: CN-HORIZON THERAPEUTICS-HZN-2022-002301

PATIENT

DRUGS (8)
  1. RAVICTI [Suspect]
     Active Substance: GLYCEROL PHENYLBUTYRATE
     Indication: Hyperammonaemia
     Dosage: 1.1 G/ML 1.5 ML, TID
     Route: 048
     Dates: start: 20211223, end: 20220510
  2. RAVICTI [Suspect]
     Active Substance: GLYCEROL PHENYLBUTYRATE
     Dosage: 1.8 ML, TID
     Route: 048
     Dates: start: 20220510, end: 20220510
  3. LEVOCARNITINE [Concomitant]
     Active Substance: LEVOCARNITINE
     Indication: Lipid metabolism disorder
     Dosage: 10 ML, QD
     Route: 048
     Dates: start: 202111
  4. LACTULOSE [Concomitant]
     Active Substance: LACTULOSE
     Indication: Hyperammonaemia
     Dosage: UNK UNK, TID
     Route: 065
  5. LACTULOSE [Concomitant]
     Active Substance: LACTULOSE
     Dosage: 5 ML, BID
  6. CITRULLINE [Concomitant]
     Active Substance: CITRULLINE
     Indication: Hyperammonaemia
     Dosage: 1.5 G TID
     Route: 065
     Dates: start: 202111
  7. GLYCYRRHIZA GLABRA\HERBALS [Concomitant]
     Active Substance: GLYCYRRHIZA GLABRA\HERBALS
     Indication: Product used for unknown indication
     Dosage: UNK
     Route: 065
     Dates: start: 202111
  8. ARGININE [Concomitant]
     Active Substance: ARGININE
     Indication: Hyperammonaemia
     Dosage: 2 G, TID
     Route: 065
     Dates: start: 202111

REACTIONS (6)
  - Upper respiratory tract infection [Recovered/Resolved]
  - Hepatic function abnormal [Recovered/Resolved]
  - Liver transplant [Unknown]
  - Pyrexia [Recovered/Resolved]
  - Decreased appetite [Recovered/Resolved]
  - Somnolence [Recovered/Resolved]

NARRATIVE: CASE EVENT DATE: 20220312
